FAERS Safety Report 11685447 (Version 1)
Quarter: 2015Q4

REPORT INFORMATION
  Report Type: Spontaneous
  Country: US (occurrence: US)
  Receive Date: 20151030
  Receipt Date: 20151030
  Transmission Date: 20160304
  Serious: Yes (Hospitalization)
  Sender: FDA-Public Use
  Company Number: US-009507513-1510USA013709

PATIENT
  Age: 4 Year
  Sex: Male

DRUGS (11)
  1. CAPTOPRIL. [Suspect]
     Active Substance: CAPTOPRIL
  2. POLYETHYLENE GLYCOL 3350. [Suspect]
     Active Substance: POLYETHYLENE GLYCOL 3350
     Indication: PRODUCT USED FOR UNKNOWN INDICATION
  3. AMOXICILLIN. [Suspect]
     Active Substance: AMOXICILLIN
  4. LASIX [Suspect]
     Active Substance: FUROSEMIDE
  5. ASPEGIC [Suspect]
     Active Substance: ASPIRIN DL-LYSINE
  6. MOTILIUM [Suspect]
     Active Substance: DOMPERIDONE
  7. CIPROFLOXACIN. [Suspect]
     Active Substance: CIPROFLOXACIN
  8. PULMICORT TURBUHALER [Suspect]
     Active Substance: BUDESONIDE
  9. SINGULAIR [Suspect]
     Active Substance: MONTELUKAST SODIUM
     Indication: PRODUCT USED FOR UNKNOWN INDICATION
  10. ALBUTEROL SULFATE. [Suspect]
     Active Substance: ALBUTEROL SULFATE
  11. ATROVENT [Suspect]
     Active Substance: IPRATROPIUM BROMIDE

REACTIONS (3)
  - Growth retardation [Unknown]
  - Thrombocytopenia [Unknown]
  - Lung disorder [Unknown]
